FAERS Safety Report 5101504-9 (Version None)
Quarter: 2006Q3

REPORT INFORMATION
  Report Type: 
  Country: None (occurrence: None)
  Receive Date: 20060911
  Receipt Date: 20060823
  Transmission Date: 20061208
  Serious: Yes (Disabling)
  Sender: FDA-Public Use
  Company Number: 2006GB01505

PATIENT
  Age: 80 Year
  Sex: Male
  Weight: 65 kg

DRUGS (6)
  1. ZOLADEX [Suspect]
     Indication: PROSTATE CANCER
     Route: 058
     Dates: start: 20060214
  2. ZOLADEX [Suspect]
     Indication: PROSTATIC SPECIFIC ANTIGEN INCREASED
     Route: 058
     Dates: start: 20060214
  3. LANSOPRAZOLE [Concomitant]
     Indication: GASTROOESOPHAGEAL REFLUX DISEASE
     Dosage: TAKEN FOR SEVERAL YEARS
  4. TIMOLOL MALEATE [Concomitant]
     Indication: GLAUCOMA
     Dosage: TAKEN FOR SEVERAL YEARS
  5. AZOPT [Concomitant]
     Indication: GLAUCOMA
     Dosage: TAKEN FOR SEVERAL YEARS
  6. CLOPIDOGREL [Concomitant]
     Indication: CORONARY ARTERY DISEASE
     Dosage: TAKEN FOR SEVERAL YEARS

REACTIONS (4)
  - ERECTILE DYSFUNCTION [None]
  - LIBIDO INCREASED [None]
  - PERSONALITY CHANGE [None]
  - PSYCHIATRIC SYMPTOM [None]
